FAERS Safety Report 9423829 (Version 1)
Quarter: 2013Q3

REPORT INFORMATION
  Report Type: Spontaneous
  Country: US (occurrence: US)
  Receive Date: 20130729
  Receipt Date: 20130729
  Transmission Date: 20140515
  Serious: Yes (Life-Threatening, Hospitalization)
  Sender: FDA-Public Use
  Company Number: US-ROCHE-1234456

PATIENT
  Age: 59 Year
  Sex: Male
  Weight: 63.56 kg

DRUGS (5)
  1. PEGASYS [Suspect]
     Indication: HEPATITIS C
     Route: 058
     Dates: start: 201110, end: 201110
  2. RIBAVIRIN [Suspect]
     Indication: HEPATITIS C
     Route: 048
     Dates: start: 201110
  3. INCIVEK [Suspect]
     Indication: HEPATITIS C
     Route: 048
     Dates: start: 201110, end: 201110
  4. SYMBICORT [Concomitant]
     Indication: ASTHMA
     Route: 065
  5. SPIRONOLACTONE [Concomitant]
     Indication: OEDEMA
     Route: 048

REACTIONS (4)
  - Convulsion [Recovered/Resolved]
  - Anaemia [Recovered/Resolved]
  - Cerebrovascular accident [Recovering/Resolving]
  - Treatment noncompliance [Unknown]
